FAERS Safety Report 7086887-5 (Version None)
Quarter: 2010Q4

REPORT INFORMATION
  Report Type: 
  Country: None (occurrence: None)
  Receive Date: 20101106
  Receipt Date: 20101026
  Transmission Date: 20110411
  Serious: Yes (Other)
  Sender: FDA-Public Use
  Company Number: HQWYE004503OCT03

PATIENT
  Sex: Female

DRUGS (10)
  1. PREMPRO [Suspect]
     Indication: MENOPAUSE
     Dosage: UNKNOWN
     Route: 048
     Dates: start: 19970301, end: 20020501
  2. PREMPRO [Suspect]
     Indication: MOOD SWINGS
  3. PREMPRO [Suspect]
     Indication: HOT FLUSH
  4. PREMARIN [Suspect]
     Indication: MENOPAUSE
     Dosage: UNKNOWN
     Route: 065
     Dates: start: 19940408, end: 19951101
  5. PREMARIN [Suspect]
     Indication: HOT FLUSH
  6. PREMARIN [Suspect]
     Indication: MOOD SWINGS
  7. PROVERA [Suspect]
     Indication: HOT FLUSH
     Dosage: UNKNOWN
     Route: 065
     Dates: start: 19940408, end: 19951101
  8. PROVERA [Suspect]
     Indication: MOOD SWINGS
  9. PROVERA [Suspect]
     Indication: MENOPAUSE
  10. PREMPHASE 14/14 [Suspect]
     Indication: HORMONE REPLACEMENT THERAPY
     Dosage: UNKNOWN
     Route: 048
     Dates: start: 19960323, end: 19970221

REACTIONS (1)
  - BREAST CANCER [None]
